FAERS Safety Report 5047516-5 (Version None)
Quarter: 2006Q3

REPORT INFORMATION
  Report Type: 
  Country: None (occurrence: None)
  Receive Date: 20060710
  Receipt Date: 20060710
  Transmission Date: 20061208
  Serious: Yes (Other)
  Sender: FDA-Public Use
  Company Number: None

PATIENT
  Sex: Male
  Weight: 122.4712 kg

DRUGS (1)
  1. MOBIC [Suspect]
     Indication: PAIN
     Dosage: 7.5 MG 1 PO QD
     Route: 048
     Dates: start: 20050408

REACTIONS (1)
  - DRUG INEFFECTIVE [None]
